FAERS Safety Report 6316080-2 (Version None)
Quarter: 2009Q3

REPORT INFORMATION
  Report Type: 
  Country: None (occurrence: None)
  Receive Date: 20090820
  Receipt Date: 20090811
  Transmission Date: 20100115
  Serious: Yes (Other)
  Sender: FDA-Public Use
  Company Number: PHHY2008FI26140

PATIENT
  Age: 33 Year
  Sex: Female
  Weight: 55 kg

DRUGS (3)
  1. ZOMETA [Suspect]
     Indication: GAUCHER'S DISEASE
     Dosage: 4 MG  TWICE A YEAR
     Dates: end: 20080116
  2. CEREZYME [Concomitant]
     Dosage: 2000 MG EVERY THREE WEEKS
     Dates: start: 19970101
  3. CONTRACEPTIVES NOS [Suspect]

REACTIONS (4)
  - CAESAREAN SECTION [None]
  - DRUG EXPOSURE DURING PREGNANCY [None]
  - NORMAL NEWBORN [None]
  - PREGNANCY ON ORAL CONTRACEPTIVE [None]
